FAERS Safety Report 9870761 (Version 1)
Quarter: 2014Q1

REPORT INFORMATION
  Report Type: Spontaneous
  Country: US (occurrence: US)
  Receive Date: 20140205
  Receipt Date: 20140205
  Transmission Date: 20141002
  Serious: Yes (Death)
  Sender: FDA-Public Use
  Company Number: US-PFIZER INC-2014029455

PATIENT
  Age: 66 Year
  Sex: Male

DRUGS (1)
  1. XALKORI [Suspect]
     Indication: GASTROINTESTINAL CARCINOMA
     Dosage: 250 MG, 2X/DAY
     Route: 048
     Dates: start: 20130719

REACTIONS (3)
  - Disease progression [Fatal]
  - Gastrointestinal carcinoma [Fatal]
  - Off label use [Unknown]
